FAERS Safety Report 18898724 (Version 1)
Quarter: 2021Q1

REPORT INFORMATION
  Report Type: Spontaneous
  Country: US (occurrence: US)
  Receive Date: 20210215
  Receipt Date: 20210215
  Transmission Date: 20210420
  Serious: No
  Sender: FDA-Public Use
  Company Number: None

PATIENT
  Age: 65 Year
  Sex: Female
  Weight: 64.8 kg

DRUGS (6)
  1. WELLPAX [Concomitant]
  2. CELEXA [Concomitant]
     Active Substance: CITALOPRAM HYDROBROMIDE
  3. CHLORATHALADONE [Concomitant]
  4. LORAZAPAM [Concomitant]
     Active Substance: LORAZEPAM
  5. VITAMINS (SMART ONES GUMMY) [Concomitant]
  6. EMGALITY [Suspect]
     Active Substance: GALCANEZUMAB-GNLM
     Indication: MIGRAINE
     Dosage: ?          QUANTITY:1 INJECTION(S);OTHER FREQUENCY:ONCE MONTHLY;?
     Route: 058
     Dates: start: 20201201, end: 20210214

REACTIONS (1)
  - Weight increased [None]

NARRATIVE: CASE EVENT DATE: 20210111
